FAERS Safety Report 7639659-4 (Version None)
Quarter: 2011Q3

REPORT INFORMATION
  Report Type: 
  Country: None (occurrence: None)
  Receive Date: 20110727
  Receipt Date: 20110720
  Transmission Date: 20111222
  Serious: Yes (Other)
  Sender: FDA-Public Use
  Company Number: TW-PFIZER INC-2011163828

PATIENT

DRUGS (6)
  1. RISPERDAL [Suspect]
     Indication: SCHIZOPHRENIA
     Dosage: 4 MG/DAY
  2. GEODON [Suspect]
     Dosage: 180 MG/ DAY
  3. GEODON [Suspect]
     Indication: SCHIZOPHRENIA
     Dosage: 60 MG/DAY
  4. GEODON [Suspect]
     Dosage: 120 MG/DAY
  5. GEODON [Suspect]
     Dosage: 180 MG, 1X/DAY
  6. RISPERDAL [Suspect]
     Dosage: 2 MG/DAY

REACTIONS (3)
  - AMENORRHOEA [None]
  - DELUSION [None]
  - HALLUCINATION, AUDITORY [None]
